FAERS Safety Report 10248981 (Version 1)
Quarter: 2014Q2

REPORT INFORMATION
  Report Type: Spontaneous
  Country: US (occurrence: None)
  Receive Date: 20140618
  Receipt Date: 20140618
  Transmission Date: 20141212
  Serious: Yes (Hospitalization)
  Sender: FDA-Public Use
  Company Number: None

PATIENT
  Age: 73 Year
  Sex: Male
  Weight: 80.2 kg

DRUGS (1)
  1. ATORVASTATIN [Suspect]
     Indication: HYPERLIPIDAEMIA
     Route: 048
     Dates: start: 20130101, end: 20131202

REACTIONS (6)
  - Malaise [None]
  - Syncope [None]
  - Incontinence [None]
  - International normalised ratio abnormal [None]
  - Renal failure acute [None]
  - Rhabdomyolysis [None]
